FAERS Safety Report 10457769 (Version 2)
Quarter: 2014Q3

REPORT INFORMATION
  Report Type: Spontaneous
  Country: US (occurrence: US)
  Receive Date: 20140916
  Receipt Date: 20140916
  Transmission Date: 20150326
  Serious: Yes (Death)
  Sender: FDA-Public Use
  Company Number: US-GLAXOSMITHKLINE-A0784400A

PATIENT
  Sex: Male
  Weight: 74.5 kg

DRUGS (11)
  1. LIPITOR [Concomitant]
     Active Substance: ATORVASTATIN CALCIUM
  2. ZYPREXA [Concomitant]
     Active Substance: OLANZAPINE
  3. LASIX [Concomitant]
     Active Substance: FUROSEMIDE
  4. LANOXIN [Concomitant]
     Active Substance: DIGOXIN
  5. AVANDIA [Suspect]
     Active Substance: ROSIGLITAZONE MALEATE
     Indication: DIABETES MELLITUS
     Route: 048
     Dates: start: 20030204, end: 2007
  6. PLAVIX [Concomitant]
     Active Substance: CLOPIDOGREL BISULFATE
  7. COREG [Concomitant]
     Active Substance: CARVEDILOL
  8. CLONIDINE. [Concomitant]
     Active Substance: CLONIDINE
  9. MONOPRIL [Concomitant]
     Active Substance: FOSINOPRIL SODIUM
  10. ASPIRIN. [Concomitant]
     Active Substance: ASPIRIN
  11. INDOMETHACIN. [Concomitant]
     Active Substance: INDOMETHACIN

REACTIONS (2)
  - Myocardial infarction [Fatal]
  - Coronary artery disease [Unknown]
